FAERS Safety Report 26201048 (Version 1)
Quarter: 2025Q4

REPORT INFORMATION
  Report Type: Spontaneous
  Country: EU (occurrence: EU)
  Receive Date: 20251226
  Receipt Date: 20251226
  Transmission Date: 20260118
  Serious: Yes (Other)
  Sender: CELLTRION
  Company Number: EU-ABBVIE-6574642

PATIENT

DRUGS (9)
  1. ADALIMUMAB [Suspect]
     Active Substance: ADALIMUMAB
     Indication: Crohn^s disease
     Route: 058
  2. ADALIMUMAB [Suspect]
     Active Substance: ADALIMUMAB
  3. USTEKINUMAB [Suspect]
     Active Substance: USTEKINUMAB
     Indication: Crohn^s disease
     Dosage: EVERY 8 WEEKS
     Dates: start: 201408
  4. FILGOTINIB [Suspect]
     Active Substance: FILGOTINIB
     Indication: Crohn^s disease
     Dates: start: 202209, end: 202303
  5. UPADACITINIB [Suspect]
     Active Substance: UPADACITINIB
     Indication: Crohn^s disease
     Route: 048
     Dates: start: 202303
  6. THIOGUANINE ANHYDROUS [Suspect]
     Active Substance: THIOGUANINE ANHYDROUS
     Indication: Crohn^s disease
     Dosage: 20 MILLIGRAM, EVERY 0.33 WEEK
     Dates: start: 201301
  7. MYCOPHENOLATE MOFETIL [Suspect]
     Active Substance: MYCOPHENOLATE MOFETIL
     Indication: Crohn^s disease
  8. VEDOLIZUMAB [Suspect]
     Active Substance: VEDOLIZUMAB
     Indication: Crohn^s disease
     Dates: end: 201711
  9. GOLIMUMAB [Suspect]
     Active Substance: GOLIMUMAB
     Indication: Crohn^s disease
     Dates: start: 202011, end: 202309

REACTIONS (9)
  - Enterocolitis [Recovering/Resolving]
  - Large intestinal stenosis [Recovering/Resolving]
  - Diarrhoea [Recovering/Resolving]
  - Proctitis [Recovering/Resolving]
  - Diarrhoea [Recovered/Resolved]
  - Frequent bowel movements [Recovered/Resolved]
  - Frequent bowel movements [Recovered/Resolved]
  - Condition aggravated [Recovering/Resolving]
  - Drug ineffective [Unknown]

NARRATIVE: CASE EVENT DATE: 20190101
